FAERS Safety Report 5330038-1 (Version None)
Quarter: 2007Q2

REPORT INFORMATION
  Report Type: 
  Country: None (occurrence: None)
  Receive Date: 20070521
  Receipt Date: 20070511
  Transmission Date: 20071010
  Serious: Yes (Hospitalization)
  Sender: FDA-Public Use
  Company Number: DE-ASTRAZENECA-2007PK00837

PATIENT
  Age: 23833 Day
  Sex: Male
  Weight: 63 kg

DRUGS (7)
  1. ZD2171 [Suspect]
     Indication: COLORECTAL CANCER METASTATIC
     Route: 048
     Dates: start: 20070115
  2. MFOLFOX6 [Suspect]
     Indication: COLORECTAL CANCER METASTATIC
     Route: 042
     Dates: start: 20070115
  3. LISIBETA [Concomitant]
     Indication: HYPERTENSION
     Route: 048
     Dates: start: 20060101
  4. OMEPRAZOLE [Concomitant]
     Indication: GASTROOESOPHAGEAL REFLUX DISEASE
     Route: 048
     Dates: start: 20060101
  5. CONCOR COR [Concomitant]
     Indication: HYPERTENSION
     Route: 048
     Dates: start: 20070213
  6. BEPANTHEN [Concomitant]
     Indication: MUCOSAL INFLAMMATION
     Dates: start: 20070410
  7. DYNEXAN [Concomitant]
     Indication: MUCOSAL INFLAMMATION
     Route: 048
     Dates: start: 20070410

REACTIONS (1)
  - GENERAL PHYSICAL HEALTH DETERIORATION [None]
